FAERS Safety Report 5004742-9 (Version None)
Quarter: 2006Q1

REPORT INFORMATION
  Report Type: 
  Country: None (occurrence: None)
  Receive Date: 20060321
  Receipt Date: 20060307
  Transmission Date: 20060701
  Serious: No
  Sender: FDA-Public Use
  Company Number: 2006US000388

PATIENT
  Sex: Male

DRUGS (1)
  1. VESICARE [Suspect]
     Dates: start: 20051101

REACTIONS (1)
  - FEELING COLD [None]
